FAERS Safety Report 5472530-5 (Version None)
Quarter: 2007Q4

REPORT INFORMATION
  Report Type: 
  Country: None (occurrence: None)
  Receive Date: 20071001
  Receipt Date: 20070924
  Transmission Date: 20080405
  Serious: Yes (Hospitalization)
  Sender: FDA-Public Use
  Company Number: US-ASTRAZENECA-2007UW13787

PATIENT
  Age: 83 Year
  Sex: Female
  Weight: 85.5 kg

DRUGS (17)
  1. ARIMIDEX [Suspect]
     Indication: BREAST CANCER STAGE I
     Route: 048
     Dates: start: 20070429, end: 20070526
  2. EFFEXOR XR [Concomitant]
     Indication: DEPRESSION
     Route: 048
  3. FISH OIL [Concomitant]
  4. SYNTHROID [Concomitant]
  5. TOPROL-XL [Concomitant]
     Route: 048
  6. VASOTEC [Concomitant]
  7. VYTORIN [Concomitant]
     Indication: BLOOD CHOLESTEROL INCREASED
     Dosage: 10/40MG
     Route: 048
  8. BONIVA [Concomitant]
  9. ASPIRIN [Concomitant]
  10. VITAMIN A [Concomitant]
  11. VITAMIN A [Concomitant]
  12. ASCORBIC ACID [Concomitant]
  13. ASCORBIC ACID [Concomitant]
  14. VITAMIN E [Concomitant]
  15. VITAMIN E [Concomitant]
  16. SPIRONOLACTONE [Concomitant]
     Indication: OEDEMA
     Route: 048
     Dates: end: 20070526
  17. LEVOTHYROXINE SODIUM [Concomitant]
     Indication: HYPOTHYROIDISM
     Route: 048

REACTIONS (2)
  - ARTHRALGIA [None]
  - HAEMORRHAGIC STROKE [None]
